FAERS Safety Report 6266228-3 (Version None)
Quarter: 2009Q3

REPORT INFORMATION
  Report Type: 
  Country: None (occurrence: None)
  Receive Date: 20090713
  Receipt Date: 20090701
  Transmission Date: 20100115
  Serious: Yes (Other)
  Sender: FDA-Public Use
  Company Number: US-PFIZER INC-2009238422

PATIENT
  Sex: Female

DRUGS (1)
  1. LYRICA [Suspect]

REACTIONS (6)
  - ANXIETY [None]
  - FEELING ABNORMAL [None]
  - MANIA [None]
  - NEURALGIA [None]
  - PARTNER STRESS [None]
  - SUICIDAL IDEATION [None]
